FAERS Safety Report 9886371 (Version 1)
Quarter: 2014Q1

REPORT INFORMATION
  Report Type: Spontaneous
  Country: US (occurrence: US)
  Receive Date: 20140210
  Receipt Date: 20140210
  Transmission Date: 20141002
  Serious: Yes (Other)
  Sender: FDA-Public Use
  Company Number: US-PFIZER INC-2014037202

PATIENT
  Age: 51 Year
  Sex: Female
  Weight: 86.17 kg

DRUGS (4)
  1. LYRICA [Suspect]
     Dosage: UNK
  2. ZANAFLEX [Concomitant]
     Dosage: TAKE OCCASIONALLY
  3. PRINZIDE [Concomitant]
     Dosage: LOW DOSES
  4. TRAMADOL [Concomitant]
     Dosage: UNK

REACTIONS (1)
  - Back disorder [Unknown]
